FAERS Safety Report 11531100 (Version 1)
Quarter: 2015Q3

REPORT INFORMATION
  Report Type: Spontaneous
  Country: US (occurrence: US)
  Receive Date: 20150903
  Receipt Date: 20150903
  Transmission Date: 20151125
  Serious: No
  Sender: FDA-Public Use
  Company Number: US-ELI_LILLY_AND_COMPANY-US201301006994

PATIENT
  Sex: Female
  Weight: 52.15 kg

DRUGS (4)
  1. REMERON [Concomitant]
     Active Substance: MIRTAZAPINE
     Indication: INSOMNIA
     Dosage: 30 MG, QD
     Route: 048
     Dates: start: 20121011
  2. CYMBALTA [Suspect]
     Active Substance: DULOXETINE HYDROCHLORIDE
     Indication: DEPRESSION
     Dosage: 60 MG, UNK
     Dates: start: 20130107
  3. NEURONTIN [Concomitant]
     Active Substance: GABAPENTIN
  4. FISH OIL [Concomitant]
     Active Substance: FISH OIL

REACTIONS (3)
  - Pregnancy with advanced maternal age [Unknown]
  - Fatigue [Unknown]
  - Breast pain [Unknown]
